FAERS Safety Report 7179176-1 (Version None)
Quarter: 2010Q4

REPORT INFORMATION
  Report Type: 
  Country: None (occurrence: None)
  Receive Date: 20101217
  Receipt Date: 20101217
  Transmission Date: 20110411
  Serious: Yes (Hospitalization)
  Sender: FDA-Public Use
  Company Number: None

PATIENT
  Age: 64 Year
  Sex: Male
  Weight: 79.83 kg

DRUGS (1)
  1. CETUXIMAB [Suspect]
     Indication: NEOPLASM MALIGNANT
     Dosage: 103 MG OTHER IV
     Route: 042
     Dates: start: 20101104, end: 20101104

REACTIONS (3)
  - ANGIOEDEMA [None]
  - RASH [None]
  - URTICARIA [None]
